FAERS Safety Report 4693062-8 (Version None)
Quarter: 2005Q2

REPORT INFORMATION
  Report Type: 
  Country: None (occurrence: None)
  Receive Date: 20050617
  Receipt Date: 20050609
  Transmission Date: 20051028
  Serious: Yes (Hospitalization)
  Sender: FDA-Public Use
  Company Number: JP-SOLVAY-00305001951

PATIENT
  Age: 67 Year
  Sex: Female

DRUGS (7)
  1. MIANSERIN [Concomitant]
     Indication: INSOMNIA
     Dosage: DAILY DOSE: 10 MILLIGRAM(S)
     Route: 065
  2. MIANSERIN [Concomitant]
     Dosage: DAILY DOSE: 20 MILLIGRAM(S)
     Route: 065
  3. FLUVOXAMINE [Suspect]
     Indication: DEPRESSION
     Dosage: DAILY DOSE: 150 MILLIGRAM(S)
     Route: 065
  4. FLUVOXAMINE MALEATE [Interacting]
     Dosage: DAILY DOSE: 25 MILLIGRAM(S)
     Route: 065
  5. FLUVOXAMINE MALEATE [Interacting]
     Dosage: DAILY DOSE: 150 MILLIGRAM(S)
     Route: 065
  6. FLUVOXAMINE MALEATE [Interacting]
     Dosage: DAILY DOSE: 100 MILLIGRAM(S)
     Route: 065
  7. ZOLPIDEM [Interacting]
     Indication: DEPRESSION
     Dosage: DAILY DOSE: 10 MILLIGRAM(S)
     Route: 065

REACTIONS (4)
  - AMNESIA [None]
  - DISINHIBITION [None]
  - DRUG INTERACTION [None]
  - SUICIDAL IDEATION [None]
